FAERS Safety Report 19752168 (Version 1)
Quarter: 2021Q3

REPORT INFORMATION
  Report Type: Spontaneous
  Country: US (occurrence: US)
  Receive Date: 20210827
  Receipt Date: 20210827
  Transmission Date: 20211014
  Serious: No
  Sender: FDA-Public Use
  Company Number: US-ELI_LILLY_AND_COMPANY-US202108009281

PATIENT
  Age: 70 Year
  Sex: Male

DRUGS (3)
  1. BASAGLAR [Suspect]
     Active Substance: INSULIN GLARGINE
     Dosage: UNK UNK, UNKNOWN (GRADUALLY INCREASE TO 10 UNITS UP TO 50/WENT TO 75 UNITS)
     Route: 058
     Dates: start: 20210803
  2. BASAGLAR [Suspect]
     Active Substance: INSULIN GLARGINE
     Dosage: UNK UNK, UNKNOWN (GRADUALLY INCREASE TO 10 UNITS UP TO 50/WENT TO 75 UNITS)
     Route: 058
     Dates: start: 20210803
  3. BASAGLAR [Suspect]
     Active Substance: INSULIN GLARGINE
     Indication: TYPE 1 DIABETES MELLITUS
     Dosage: UNK UNK, UNKNOWN (GRADUALLY INCREASE TO 10 UNITS UP TO 50/WENT TO 75 UNITS)
     Route: 058
     Dates: start: 20210803

REACTIONS (5)
  - Drug hypersensitivity [Unknown]
  - Blood glucose decreased [Unknown]
  - Blood glucose abnormal [Unknown]
  - Blood pressure increased [Recovered/Resolved]
  - Head discomfort [Recovered/Resolved]

NARRATIVE: CASE EVENT DATE: 20210803
